FAERS Safety Report 13751004 (Version 1)
Quarter: 2017Q3

REPORT INFORMATION
  Report Type: Spontaneous
  Country: US (occurrence: US)
  Receive Date: 20170713
  Receipt Date: 20170713
  Transmission Date: 20171127
  Serious: No
  Sender: FDA-Public Use
  Company Number: US-ASTELLAS-2017US009748

PATIENT
  Age: 68 Year
  Sex: Male

DRUGS (2)
  1. MYRBETRIQ [Suspect]
     Active Substance: MIRABEGRON
     Dosage: 0.5 DF, ONCE DAILY
     Route: 065
     Dates: start: 201612
  2. MYRBETRIQ [Suspect]
     Active Substance: MIRABEGRON
     Indication: NOCTURIA
     Route: 065

REACTIONS (5)
  - Drug ineffective [Unknown]
  - Underdose [Unknown]
  - Drug prescribing error [Unknown]
  - Drug administration error [Unknown]
  - Wrong technique in product usage process [Unknown]
